FAERS Safety Report 7168426-3 (Version None)
Quarter: 2010Q4

REPORT INFORMATION
  Report Type: 
  Country: None (occurrence: None)
  Receive Date: 20101216
  Receipt Date: 20100106
  Transmission Date: 20110411
  Serious: No
  Sender: FDA-Public Use
  Company Number: US-AMGEN-KDL384153

PATIENT

DRUGS (1)
  1. ENBREL [Suspect]
     Indication: RHEUMATOID ARTHRITIS
     Dosage: 50 MG, QWK
     Route: 058

REACTIONS (10)
  - BACK PAIN [None]
  - CANDIDIASIS [None]
  - ERYTHEMA [None]
  - GAIT DISTURBANCE [None]
  - JOINT DESTRUCTION [None]
  - NAIL DISORDER [None]
  - PRURITUS [None]
  - SCAB [None]
  - SKIN FISSURES [None]
  - ULCER [None]
